FAERS Safety Report 24868795 (Version 2)
Quarter: 2025Q1

REPORT INFORMATION
  Report Type: Spontaneous
  Country: JP (occurrence: JP)
  Receive Date: 20250121
  Receipt Date: 20250207
  Transmission Date: 20250409
  Serious: Yes (Life-Threatening, Hospitalization, Other)
  Sender: OTSUKA
  Company Number: JP-OTSUKA-2025_001144

PATIENT
  Age: 20 Year
  Sex: Female

DRUGS (10)
  1. REXULTI [Suspect]
     Active Substance: BREXPIPRAZOLE
     Indication: Schizophrenia
     Route: 048
     Dates: start: 20241218, end: 20241223
  2. REXULTI [Suspect]
     Active Substance: BREXPIPRAZOLE
     Route: 048
     Dates: start: 20241224, end: 20241226
  3. REXULTI [Suspect]
     Active Substance: BREXPIPRAZOLE
     Indication: Schizophrenia
     Route: 048
     Dates: start: 202412, end: 20241217
  4. REXULTI [Suspect]
     Active Substance: BREXPIPRAZOLE
     Route: 048
     Dates: start: 20241204, end: 202412
  5. OLANZAPINE [Suspect]
     Active Substance: OLANZAPINE
     Indication: Schizophrenia
     Route: 065
     Dates: end: 202412
  6. HALOPERIDOL [Suspect]
     Active Substance: HALOPERIDOL
     Indication: Schizophrenia
     Route: 065
     Dates: end: 202412
  7. LORAZEPAM [Concomitant]
     Active Substance: LORAZEPAM
     Indication: Schizophrenia
     Route: 048
     Dates: start: 20241205, end: 20241225
  8. LORAZEPAM [Concomitant]
     Active Substance: LORAZEPAM
     Route: 048
     Dates: start: 20241226
  9. MAGNESIUM OXIDE [Concomitant]
     Active Substance: MAGNESIUM OXIDE
     Indication: Schizophrenia
     Route: 048
     Dates: start: 20241209, end: 20241225
  10. MAGNESIUM OXIDE [Concomitant]
     Active Substance: MAGNESIUM OXIDE
     Route: 048
     Dates: start: 20241226

REACTIONS (1)
  - Neuroleptic malignant syndrome [Recovered/Resolved]

NARRATIVE: CASE EVENT DATE: 20241223
